FAERS Safety Report 24009644 (Version 5)
Quarter: 2024Q4

REPORT INFORMATION
  Report Type: Spontaneous
  Country: US (occurrence: US)
  Receive Date: 20240625
  Receipt Date: 20241211
  Transmission Date: 20250114
  Serious: No
  Sender: PFIZER
  Company Number: US-PFIZER INC-202400198581

PATIENT
  Age: 15 Year
  Sex: Male
  Weight: 45.36 kg

DRUGS (2)
  1. GENOTROPIN [Suspect]
     Active Substance: SOMATROPIN
     Indication: Growth hormone deficiency
     Dosage: 1.6 MG ONCE DAILY ALTERNATING 1.4 MG ONCE DAILY
  2. GENOTROPIN [Suspect]
     Active Substance: SOMATROPIN
     Dosage: 1.6 MG ONCE DAILY ALTERNATING 1.4 MG ONCE DAILY

REACTIONS (4)
  - Drug dose omission by device [Unknown]
  - Product physical issue [Unknown]
  - Device leakage [Unknown]
  - Incorrect dose administered by device [Unknown]
